FAERS Safety Report 15674259 (Version 1)
Quarter: 2018Q4

REPORT INFORMATION
  Report Type: Report from Study
  Country: IT (occurrence: IT)
  Receive Date: 20181130
  Receipt Date: 20181130
  Transmission Date: 20190205
  Serious: Yes (Life-Threatening)
  Sender: FDA-Public Use
  Company Number: IT-TEVA-2018-IT-980227

PATIENT
  Age: 79 Year
  Sex: Female

DRUGS (11)
  1. CORDARONE [Concomitant]
     Active Substance: AMIODARONE HYDROCHLORIDE
     Route: 048
  2. LUVION 50 MG COMPRESSE [Concomitant]
     Route: 048
  3. REPAGLINIDE. [Suspect]
     Active Substance: REPAGLINIDE
     Indication: DIABETES MELLITUS
     Dosage: 6 MILLIGRAM DAILY;
     Route: 048
  4. LANTUS [Suspect]
     Active Substance: INSULIN GLARGINE
     Indication: DIABETES MELLITUS
     Dosage: 24 IU (INTERNATIONAL UNIT) DAILY;
     Route: 058
  5. CARDIRENE 75 MG [Concomitant]
     Active Substance: ASPIRIN DL-LYSINE
     Route: 048
  6. LASIX [Concomitant]
     Active Substance: FUROSEMIDE
     Route: 048
  7. ALLOPURINOL. [Concomitant]
     Active Substance: ALLOPURINOL
     Route: 048
  8. DILATREND [Concomitant]
     Active Substance: CARVEDILOL
     Route: 048
  9. PURINETHOL 50 MG COMPRESSE [Concomitant]
     Route: 048
  10. SIVASTIN 20 MG COMPRESSE RIVESTITE CON FILM [Concomitant]
     Route: 048
  11. EUTIROX 100 MICROGRAMMI COMPRESSE [Concomitant]
     Active Substance: LEVOTHYROXINE SODIUM
     Route: 048

REACTIONS (4)
  - Sopor [Recovering/Resolving]
  - Hypothermia [Recovering/Resolving]
  - Hypoglycaemia [Recovering/Resolving]
  - Loss of consciousness [Recovering/Resolving]

NARRATIVE: CASE EVENT DATE: 20180107
